FAERS Safety Report 4579819-2 (Version None)
Quarter: 2005Q1

REPORT INFORMATION
  Report Type: 
  Country: None (occurrence: None)
  Receive Date: 20050210
  Receipt Date: 20050128
  Transmission Date: 20050727
  Serious: Yes (Life-Threatening)
  Sender: FDA-Public Use
  Company Number: 2005022833

PATIENT
  Age: 42 Year
  Sex: Male

DRUGS (6)
  1. VIRACEPT [Suspect]
     Indication: HIV TEST POSITIVE
     Dosage: ORAL
     Route: 048
     Dates: end: 20040409
  2. BACTRIM [Suspect]
     Indication: ILL-DEFINED DISORDER
     Dosage: ORAL
     Route: 048
     Dates: start: 20031215, end: 20040409
  3. LAMIVUDINE AND ZIDOVUDINE [Suspect]
     Indication: HIV TEST POSITIVE
     Dosage: 2 IN 1 D, ORAL
     Route: 048
     Dates: start: 20030615, end: 20040409
  4. ERGENYL CHRONO (VALPROATE SODIUM, VALPROIC ACID) [Suspect]
     Indication: EPILEPSY
     Dosage: 2 IN 1 D, ORAL
     Route: 048
     Dates: start: 20030915, end: 20040415
  5. PERINDOPRIL (PERINDOPRIL) [Suspect]
     Indication: HYPERTENSION
     Dosage: 4 MG (4 MG, 1 IN 1 D), ORAL
     Route: 048
     Dates: start: 20030615
  6. BACLOFEN [Suspect]
     Indication: ILL-DEFINED DISORDER
     Dates: end: 20040809

REACTIONS (8)
  - ALANINE AMINOTRANSFERASE INCREASED [None]
  - APLASTIC ANAEMIA [None]
  - ASPARTATE AMINOTRANSFERASE INCREASED [None]
  - BIOPSY BONE MARROW ABNORMAL [None]
  - BLOOD CREATININE ABNORMAL [None]
  - BLOOD LACTATE DEHYDROGENASE INCREASED [None]
  - PROTHROMBIN TIME SHORTENED [None]
  - TREATMENT NONCOMPLIANCE [None]
